FAERS Safety Report 17821670 (Version 1)
Quarter: 2020Q2

REPORT INFORMATION
  Report Type: Report from Study
  Country: None (occurrence: US)
  Receive Date: 20200525
  Receipt Date: 20200525
  Transmission Date: 20200714
  Serious: No
  Sender: FDA-Public Use
  Company Number: US-BIOVITRUM-2020US1433

PATIENT
  Age: 34 Year
  Sex: Male

DRUGS (2)
  1. KINERET [Suspect]
     Active Substance: ANAKINRA
     Indication: GOUTY TOPHUS
  2. KINERET [Suspect]
     Active Substance: ANAKINRA
     Indication: GOUT
     Dates: start: 20200305

REACTIONS (3)
  - Sinusitis [Unknown]
  - Off label use [Unknown]
  - Influenza like illness [Unknown]

NARRATIVE: CASE EVENT DATE: 20200305
